FAERS Safety Report 6654442-4 (Version None)
Quarter: 2010Q1

REPORT INFORMATION
  Report Type: 
  Country: None (occurrence: None)
  Receive Date: 20100326
  Receipt Date: 20100318
  Transmission Date: 20100710
  Serious: Yes (Hospitalization)
  Sender: FDA-Public Use
  Company Number: US-AMGEN-QUU400614

PATIENT
  Sex: Female

DRUGS (3)
  1. NPLATE [Suspect]
     Indication: IDIOPATHIC THROMBOCYTOPENIC PURPURA
     Dates: start: 20090505, end: 20091008
  2. CORTICOSTEROIDS [Concomitant]
     Dates: start: 19970101
  3. IMMU-G [Concomitant]

REACTIONS (2)
  - HOSPITALISATION [None]
  - WOUND HAEMORRHAGE [None]
